FAERS Safety Report 4918643-5 (Version None)
Quarter: 2006Q1

REPORT INFORMATION
  Report Type: 
  Country: None (occurrence: None)
  Receive Date: 20060221
  Receipt Date: 20060221
  Transmission Date: 20060701
  Serious: Yes (Disabling)
  Sender: FDA-Public Use
  Company Number: None

PATIENT
  Age: 33 Year
  Sex: Female
  Weight: 104.3273 kg

DRUGS (2)
  1. CIPRO [Suspect]
     Indication: TUBAL LIGATION
     Dosage: 1 TABLET   2X DAILY PO
     Route: 048
     Dates: start: 20060211, end: 20060212
  2. LEVAQUIN [Concomitant]

REACTIONS (7)
  - ARTHRALGIA [None]
  - DRUG HYPERSENSITIVITY [None]
  - DRY MOUTH [None]
  - LIP DRY [None]
  - PAIN [None]
  - PARALYSIS [None]
  - TONGUE DISORDER [None]
